FAERS Safety Report 10679678 (Version 1)
Quarter: 2014Q4

REPORT INFORMATION
  Report Type: Spontaneous
  Country: GB (occurrence: GB)
  Receive Date: 20141229
  Receipt Date: 20141229
  Transmission Date: 20150529
  Serious: Yes (Other)
  Sender: FDA-Public Use
  Company Number: GB-TEVA-530474ISR

PATIENT
  Age: 5 Year
  Sex: Male

DRUGS (6)
  1. BACLOFEN. [Suspect]
     Active Substance: BACLOFEN
     Dosage: 500 UG, PER DAY  (2000UG/ML)
     Route: 037
  2. TRIHEXYPHENIDYL [Suspect]
     Active Substance: TRIHEXYPHENIDYL
     Indication: PRODUCT USED FOR UNKNOWN INDICATION
     Route: 065
  3. BACLOFEN. [Suspect]
     Active Substance: BACLOFEN
     Dosage: 549.5 UG, PER DAY (2000UG/ML)
     Route: 037
     Dates: start: 20141201
  4. BACLOFEN. [Suspect]
     Active Substance: BACLOFEN
     Dosage: 360 UG, PER DAY  (2000UG/ML)
     Route: 037
  5. BACLOFEN. [Suspect]
     Active Substance: BACLOFEN
     Indication: PRODUCT USED FOR UNKNOWN INDICATION
     Dosage: 550.6 UG, PER DAY  (3000UG/ML)
     Route: 037
     Dates: start: 20141205
  6. BACLOFEN. [Suspect]
     Active Substance: BACLOFEN
     Dosage: 449.4 UG, PER DAY  (3000UG/ML)
     Route: 037
     Dates: start: 20141204

REACTIONS (12)
  - Flushing [Recovering/Resolving]
  - Malaise [Recovering/Resolving]
  - Hypertension [Recovering/Resolving]
  - Motor dysfunction [Recovering/Resolving]
  - Irritability [Recovering/Resolving]
  - Vomiting [Recovering/Resolving]
  - Speech disorder [Recovering/Resolving]
  - Dystonia [Recovering/Resolving]
  - Hypotonia [Recovering/Resolving]
  - Muscle spasticity [Recovering/Resolving]
  - Tachycardia [Recovering/Resolving]
  - Viral infection [Recovering/Resolving]
